FAERS Safety Report 9441258 (Version 3)
Quarter: 2014Q1

REPORT INFORMATION
  Report Type: Spontaneous
  Country: US (occurrence: US)
  Receive Date: 20130805
  Receipt Date: 20140109
  Transmission Date: 20141002
  Serious: Yes (Hospitalization)
  Sender: FDA-Public Use
  Company Number: US-B.I. PHARMACEUTICALS,INC./RIDGEFIELD-2013-BI-22928BP

PATIENT
  Age: 85 Year
  Sex: Male
  Weight: 77.11 kg

DRUGS (6)
  1. PRADAXA [Suspect]
     Indication: ATRIAL FIBRILLATION
     Dosage: 300 MG
     Route: 048
     Dates: start: 20120528, end: 20121004
  2. ECOTRIN [Concomitant]
     Dosage: 81 MG
  3. LISINOPRIL [Concomitant]
     Dosage: 10 MG
  4. METFORMIN [Concomitant]
     Indication: DIABETES MELLITUS
     Dosage: 500 MG
  5. TERAZOSIN [Concomitant]
     Indication: URINARY TRACT OBSTRUCTION
  6. TUMS [Concomitant]
     Indication: GASTROOESOPHAGEAL REFLUX DISEASE

REACTIONS (3)
  - Lower gastrointestinal haemorrhage [Unknown]
  - Haematochezia [Unknown]
  - Anaemia [Not Recovered/Not Resolved]
